FAERS Safety Report 7278284-4 (Version None)
Quarter: 2010Q4

REPORT INFORMATION
  Report Type: 
  Country: None (occurrence: None)
  Receive Date: 20101206
  Receipt Date: 20101028
  Transmission Date: 20110411
  Serious: Yes (Life-Threatening, Hospitalization, Disabling)
  Sender: FDA-Public Use
  Company Number: 2010SP057461

PATIENT
  Age: 27 Year
  Sex: Female

DRUGS (2)
  1. SAPHRIS [Suspect]
     Indication: BIPOLAR I DISORDER
     Dosage: 5 MG;ONCE;SL
     Route: 060
     Dates: start: 20100901
  2. LAMICTAL [Concomitant]

REACTIONS (1)
  - DYSTONIA [None]
